FAERS Safety Report 8136335-9 (Version None)
Quarter: 2012Q1

REPORT INFORMATION
  Report Type: 
  Country: None (occurrence: None)
  Receive Date: 20120214
  Receipt Date: 20120213
  Transmission Date: 20120608
  Serious: Yes (Hospitalization)
  Sender: FDA-Public Use
  Company Number: US-ACTELION-A-NJ2012-59711

PATIENT

DRUGS (3)
  1. TRACLEER [Suspect]
     Dosage: 125 MG, QD
     Route: 048
     Dates: start: 20120116
  2. COUMADIN [Concomitant]
  3. TRACLEER [Suspect]
     Indication: PULMONARY ARTERIAL HYPERTENSION
     Dosage: 125 MG, BID
     Route: 048
     Dates: start: 20111201, end: 20120115

REACTIONS (4)
  - SCHIZOAFFECTIVE DISORDER BIPOLAR TYPE [None]
  - CONCOMITANT DISEASE AGGRAVATED [None]
  - HYPOXIA [None]
  - CONFUSIONAL STATE [None]
